FAERS Safety Report 10062904 (Version 1)
Quarter: 2014Q1

REPORT INFORMATION
  Report Type: Spontaneous
  Country: US (occurrence: None)
  Receive Date: 20140328
  Receipt Date: 20140328
  Transmission Date: 20141002
  Serious: No
  Sender: FDA-Public Use
  Company Number: 1000054638

PATIENT
  Age: 70 Year
  Sex: Male

DRUGS (6)
  1. LINZESS (LINACLOTIDE)(145 MICROGRAM, CAPSULES) [Suspect]
     Indication: CONSTIPATION
     Dates: start: 201304, end: 20140223
  2. PRADAXA(DABIGATRAN ETEXILATE MESILATE)(DABIGATRAN ETEXILATE MESILATE) [Concomitant]
  3. DILTIAZEM(DILTIAZEM) [Concomitant]
  4. FEXOFENADINE(FEXOFENADINE)(FEXOFENADINE) [Concomitant]
  5. XANAX(ALPRAZOLAM)(ALPRAZOLAM) [Concomitant]
  6. BETAXOLOL(BETAXOLOL)(BETAXOLOL) [Concomitant]

REACTIONS (4)
  - Faeces pale [None]
  - Abnormal faeces [None]
  - Proctalgia [None]
  - Drug ineffective [None]
